FAERS Safety Report 17217260 (Version 1)
Quarter: 2019Q4

REPORT INFORMATION
  Report Type: Report from Study
  Country: ES (occurrence: ES)
  Receive Date: 20191231
  Receipt Date: 20191231
  Transmission Date: 20200122
  Serious: Yes (Hospitalization)
  Sender: FDA-Public Use
  Company Number: ES-TEVA-2019-ES-1159325

PATIENT
  Age: 25 Year
  Sex: Male

DRUGS (6)
  1. FOLICO ACIDO (149A) [Concomitant]
     Indication: ANAEMIA FOLATE DEFICIENCY
     Dosage: 5 MG
     Route: 048
     Dates: start: 20170705
  2. PREDNISONA (886A) [Concomitant]
     Active Substance: PREDNISONE
     Indication: SYSTEMIC LUPUS ERYTHEMATOSUS
     Dosage: 5 MG
     Route: 048
     Dates: start: 20161212
  3. HIDROXICLOROQUINA SULFATO (2143SU) [Concomitant]
     Indication: SYSTEMIC LUPUS ERYTHEMATOSUS
     Dosage: 200 MILLIGRAM
     Route: 048
     Dates: start: 20161212
  4. PARACETAMOL (12A) [Concomitant]
     Active Substance: ACETAMINOPHEN
     Indication: ARTHRALGIA
     Dosage: 3 GRAM
     Route: 048
     Dates: start: 20161212
  5. RANITIDINA (2A) [Concomitant]
     Active Substance: RANITIDINE
     Indication: PROPHYLAXIS AGAINST GASTROINTESTINAL ULCER
     Dosage: 150 MG
     Route: 048
     Dates: start: 20170705
  6. MICOFENOLATO DE MOFETILO (7330LM) [Suspect]
     Active Substance: MYCOPHENOLATE MOFETIL
     Indication: SYSTEMIC LUPUS ERYTHEMATOSUS
     Dosage: 1440 MG
     Route: 048
     Dates: start: 20170705

REACTIONS (1)
  - Agranulocytosis [Recovered/Resolved]

NARRATIVE: CASE EVENT DATE: 20171215
